FAERS Safety Report 9049009 (Version 1)
Quarter: 2013Q1

REPORT INFORMATION
  Report Type: Spontaneous
  Country: US (occurrence: None)
  Receive Date: 20130129
  Receipt Date: 20130129
  Transmission Date: 20140127
  Serious: Yes (Other)
  Sender: FDA-Public Use
  Company Number: None

PATIENT
  Age: 62 Year
  Sex: Female
  Weight: 92.53 kg

DRUGS (1)
  1. DOXAZOSIN [Suspect]
     Indication: HYPERTENSION

REACTIONS (2)
  - Rash [None]
  - Product substitution issue [None]
